FAERS Safety Report 6568859-X (Version None)
Quarter: 2010Q1

REPORT INFORMATION
  Report Type: 
  Country: None (occurrence: None)
  Receive Date: 20100201
  Receipt Date: 20100201
  Transmission Date: 20100710
  Serious: Yes (Hospitalization, Disabling)
  Sender: FDA-Public Use
  Company Number: None

PATIENT
  Age: 85 Year
  Sex: Female
  Weight: 70.5 kg

DRUGS (4)
  1. RECOTHROM [Suspect]
     Indication: OPERATIVE HAEMORRHAGE
     Dosage: 1-2ML ONCE THROUGH BIOPSY TRACT
     Dates: start: 20090915
  2. ROBITUSSIN WITH CODEINE [Concomitant]
  3. VERSED [Concomitant]
  4. FENTANYL-100 [Concomitant]

REACTIONS (2)
  - ISCHAEMIC STROKE [None]
  - POST PROCEDURAL STROKE [None]
